FAERS Safety Report 8164364-8 (Version None)
Quarter: 2012Q1

REPORT INFORMATION
  Report Type: 
  Country: None (occurrence: None)
  Receive Date: 20120224
  Receipt Date: 20120221
  Transmission Date: 20120608
  Serious: Yes (Other)
  Sender: FDA-Public Use
  Company Number: US-TEVA-317253USA

PATIENT
  Age: 70 Year
  Sex: Female

DRUGS (2)
  1. FENTORA [Suspect]
     Indication: BREAKTHROUGH PAIN
     Dosage: PRN
     Route: 002
  2. FENTANYL [Concomitant]
     Route: 062

REACTIONS (2)
  - TOOTHACHE [None]
  - INTENTIONAL DRUG MISUSE [None]
